FAERS Safety Report 4806366-2 (Version None)
Quarter: 2005Q4

REPORT INFORMATION
  Report Type: 
  Country: None (occurrence: None)
  Receive Date: 20051021
  Receipt Date: 20050701
  Transmission Date: 20060501
  Serious: Yes (Hospitalization, Disabling)
  Sender: FDA-Public Use
  Company Number: US-MERCK-0507USA00467

PATIENT
  Age: 57 Year
  Sex: Female
  Weight: 84 kg

DRUGS (7)
  1. VIOXX [Suspect]
     Indication: OSTEOARTHRITIS
     Route: 048
     Dates: start: 19991201, end: 20041001
  2. VIOXX [Suspect]
     Route: 048
  3. ZOLOFT [Concomitant]
     Route: 065
  4. XANAX [Concomitant]
     Route: 065
  5. FOSAMAX [Concomitant]
     Route: 065
  6. ASPIRIN [Concomitant]
     Route: 065
  7. ZYRTEC [Concomitant]
     Route: 065

REACTIONS (20)
  - ARTERIOSCLEROSIS [None]
  - ATRIOVENTRICULAR BLOCK [None]
  - CARDIOVASCULAR DISORDER [None]
  - CHEST PAIN [None]
  - CORONARY ARTERY DISEASE [None]
  - CORONARY ARTERY OCCLUSION [None]
  - DEPRESSION [None]
  - GASTROOESOPHAGEAL REFLUX DISEASE [None]
  - HYPERLIPIDAEMIA [None]
  - HYPERSENSITIVITY [None]
  - HYPERTENSION [None]
  - HYPERTHYROIDISM [None]
  - MYOCARDIAL INFARCTION [None]
  - OBESITY [None]
  - OBSTRUCTIVE AIRWAYS DISORDER [None]
  - OSTEOARTHRITIS [None]
  - OSTEOPOROSIS [None]
  - POLYTRAUMATISM [None]
  - RESTRICTIVE PULMONARY DISEASE [None]
  - THYROID DISORDER [None]
